FAERS Safety Report 5083161-3 (Version None)
Quarter: 2006Q3

REPORT INFORMATION
  Report Type: 
  Country: None (occurrence: None)
  Receive Date: 20060818
  Receipt Date: 20060810
  Transmission Date: 20061208
  Serious: Yes (Hospitalization)
  Sender: FDA-Public Use
  Company Number: GB-SP-2006-02149

PATIENT
  Age: 58 Year
  Sex: Female

DRUGS (2)
  1. IMMUCYST [Suspect]
     Indication: URETERIC CANCER
     Dosage: ONCE A WEEK
     Route: 043
  2. IMMUCYST [Suspect]
     Dosage: ONCE A WEEK
     Route: 043

REACTIONS (4)
  - BOVINE TUBERCULOSIS [None]
  - INCORRECT ROUTE OF DRUG ADMINISTRATION [None]
  - OFF LABEL USE [None]
  - PYREXIA [None]
